FAERS Safety Report 12371153 (Version 1)
Quarter: 2016Q2

REPORT INFORMATION
  Report Type: Spontaneous
  Country: US (occurrence: US)
  Receive Date: 20160516
  Receipt Date: 20160516
  Transmission Date: 20160815
  Serious: Yes (Other)
  Sender: FDA-Public Use
  Company Number: US-AUROBINDO-AUR-APU-2014-07110

PATIENT
  Age: 69 Year
  Sex: Female
  Weight: 87.98 kg

DRUGS (4)
  1. DEXTROAMPHETAMINE SULFATE TABLETS, USP 5 MG [Suspect]
     Active Substance: DEXTROAMPHETAMINE SULFATE
     Indication: CHRONIC FATIGUE SYNDROME
  2. DEXTROAMPHETAMINE SULFATE TABLETS, USP 5 MG [Suspect]
     Active Substance: DEXTROAMPHETAMINE SULFATE
     Indication: ANXIETY
  3. DEXTROAMPHETAMINE SULFATE TABLETS, USP 5 MG [Suspect]
     Active Substance: DEXTROAMPHETAMINE SULFATE
     Indication: PANIC ATTACK
  4. DEXTROAMPHETAMINE SULFATE TABLETS, USP 5 MG [Suspect]
     Active Substance: DEXTROAMPHETAMINE SULFATE
     Indication: POST-TRAUMATIC STRESS DISORDER
     Dosage: 3 DF, DAILY
     Route: 065
     Dates: start: 20140618, end: 201407

REACTIONS (10)
  - Nausea [Unknown]
  - Alopecia [Unknown]
  - Skin discolouration [Unknown]
  - Dry skin [Unknown]
  - Diarrhoea [Unknown]
  - Weight decreased [Unknown]
  - Vertigo [Unknown]
  - Confusional state [Unknown]
  - Malaise [Unknown]
  - Vomiting [Unknown]

NARRATIVE: CASE EVENT DATE: 20140618
